FAERS Safety Report 16706268 (Version 5)
Quarter: 2020Q2

REPORT INFORMATION
  Report Type: Spontaneous
  Country: US (occurrence: US)
  Receive Date: 20190815
  Receipt Date: 20200610
  Transmission Date: 20200713
  Serious: Yes (Other)
  Sender: FDA-Public Use
  Company Number: US-PFIZER INC-2019348867

PATIENT
  Age: 76 Year
  Sex: Female
  Weight: 100 kg

DRUGS (6)
  1. LYRICA [Suspect]
     Active Substance: PREGABALIN
     Indication: NEUROPATHY PERIPHERAL
     Dosage: 150 MG, DAILY (50 MG TAKES 1 IN AM AND 2 AT NIGHT)
     Route: 048
  2. LYRICA [Suspect]
     Active Substance: PREGABALIN
     Indication: SLEEP DISORDER
     Dosage: 150 MG, 2X/DAY
     Route: 048
     Dates: start: 2020, end: 2020
  3. LYRICA [Suspect]
     Active Substance: PREGABALIN
     Indication: PLASMA CELL MYELOMA
     Dosage: 300 MG, 2X/DAY
     Route: 048
     Dates: start: 20200424, end: 2020
  4. LYRICA [Suspect]
     Active Substance: PREGABALIN
     Indication: SPINAL OSTEOARTHRITIS
     Dosage: 100 MG, 2X/DAY (50 MG, TWO PILLS TWICE A DAY)
     Route: 048
     Dates: start: 2020, end: 2020
  5. LYRICA [Suspect]
     Active Substance: PREGABALIN
     Indication: CERVICAL RADICULOPATHY
     Dosage: 300 MG, 2X/DAY (150 MG CAPSULE, TAKE TWO CAPSULES 300 MG TWO TIMES DAILY)
     Route: 048
     Dates: start: 2020
  6. LYRICA [Suspect]
     Active Substance: PREGABALIN
     Indication: NEUROPATHY PERIPHERAL

REACTIONS (7)
  - Plasma cell myeloma recurrent [Unknown]
  - Nausea [Unknown]
  - Dyskinesia [Unknown]
  - Drug ineffective [Unknown]
  - Vision blurred [Unknown]
  - Fatigue [Unknown]
  - Asthenia [Unknown]
